FAERS Safety Report 14387165 (Version 3)
Quarter: 2018Q4

REPORT INFORMATION
  Report Type: Spontaneous
  Country: US (occurrence: US)
  Receive Date: 20180115
  Receipt Date: 20181008
  Transmission Date: 20190204
  Serious: Yes (Other)
  Sender: FDA-Public Use
  Company Number: US-SA-2017SA169677

PATIENT
  Age: 59 Year
  Sex: Female

DRUGS (3)
  1. DOCETAXEL. [Suspect]
     Active Substance: DOCETAXEL
     Indication: BREAST CANCER FEMALE
     Dosage: 135
     Route: 042
     Dates: start: 20120806, end: 20120806
  2. DOCETAXEL. [Suspect]
     Active Substance: DOCETAXEL
     Dosage: 135
     Route: 042
     Dates: start: 20121119, end: 20121119
  3. PARAPLATIN [Concomitant]
     Active Substance: CARBOPLATIN

REACTIONS (2)
  - Alopecia [Recovering/Resolving]
  - Psychological trauma [Unknown]
